FAERS Safety Report 19745276 (Version 2)
Quarter: 2021Q4

REPORT INFORMATION
  Report Type: Spontaneous
  Country: KR (occurrence: KR)
  Receive Date: 20210825
  Receipt Date: 20211001
  Transmission Date: 20220303
  Serious: Yes (Death)
  Sender: FDA-Public Use
  Company Number: KR-PFIZER INC-202101086347

PATIENT
  Age: 80 Year
  Sex: Female

DRUGS (1)
  1. VYNDAMAX [Suspect]
     Active Substance: TAFAMIDIS
     Dosage: 61 MG, 1X/DAY
     Route: 048
     Dates: start: 202106, end: 20210822

REACTIONS (1)
  - Death [Fatal]

NARRATIVE: CASE EVENT DATE: 20210823
